FAERS Safety Report 13825619 (Version 1)
Quarter: 2017Q3

REPORT INFORMATION
  Report Type: Spontaneous
  Country: US (occurrence: US)
  Receive Date: 20170802
  Receipt Date: 20170802
  Transmission Date: 20171127
  Serious: Yes (Other)
  Sender: FDA-Public Use
  Company Number: US-BAYER-2017-144047

PATIENT
  Age: 49 Year
  Sex: Male

DRUGS (1)
  1. KOGENATE FS [Suspect]
     Active Substance: ANTIHEMOPHILIC FACTOR, HUMAN RECOMBINANT
     Indication: FACTOR VIII DEFICIENCY
     Dosage: 3000 U, BIW (STRENGTHS: 2117 AND 788)
     Route: 042
     Dates: start: 20170317

REACTIONS (1)
  - Spontaneous haemorrhage [None]

NARRATIVE: CASE EVENT DATE: 2017
